FAERS Safety Report 5300182-3 (Version None)
Quarter: 2007Q2

REPORT INFORMATION
  Report Type: 
  Country: None (occurrence: None)
  Receive Date: 20070418
  Receipt Date: 20070326
  Transmission Date: 20071010
  Serious: Yes (Life-Threatening, Hospitalization, Other)
  Sender: FDA-Public Use
  Company Number: DE-BAYER-200712114GDS

PATIENT
  Age: 44 Year
  Sex: Male

DRUGS (6)
  1. ASPIRIN [Suspect]
     Indication: THROMBOSIS PROPHYLAXIS
     Route: 042
  2. ASPIRIN [Suspect]
     Route: 048
  3. ASPIRIN [Suspect]
     Route: 048
  4. CLOPIDOGREL [Suspect]
     Indication: THROMBOSIS PROPHYLAXIS
     Route: 065
  5. CLOPIDOGREL [Suspect]
     Route: 065
  6. HEPARIN [Suspect]
     Indication: THROMBOSIS PROPHYLAXIS
     Dosage: UNIT DOSE: 5000 IU
     Route: 042

REACTIONS (3)
  - DRUG RESISTANCE [None]
  - MYOCARDIAL INFARCTION [None]
  - STENT OCCLUSION [None]
